FAERS Safety Report 6889226-5 (Version None)
Quarter: 2010Q3

REPORT INFORMATION
  Report Type: 
  Country: None (occurrence: None)
  Receive Date: 20100730
  Receipt Date: 20080114
  Transmission Date: 20110219
  Serious: No
  Sender: FDA-Public Use
  Company Number: US-PFIZER INC-2007102972

PATIENT
  Sex: Female
  Weight: 62.272 kg

DRUGS (2)
  1. LIPITOR [Suspect]
     Indication: BLOOD CHOLESTEROL
     Route: 048
  2. ACTONEL [Concomitant]
     Indication: BONE DENSITOMETRY
     Dates: end: 20070901

REACTIONS (1)
  - PAIN IN EXTREMITY [None]
